FAERS Safety Report 9999746 (Version 1)
Quarter: 2014Q1

REPORT INFORMATION
  Report Type: Report from Study
  Country: CA (occurrence: CA)
  Receive Date: 20140312
  Receipt Date: 20140312
  Transmission Date: 20141002
  Serious: Yes (Other)
  Sender: FDA-Public Use
  Company Number: CA-JNJFOC-20140304173

PATIENT
  Age: 65 Year
  Sex: Male
  Weight: 109 kg

DRUGS (5)
  1. REMICADE [Suspect]
     Indication: CROHN^S DISEASE
     Dosage: 0,2,6 THEN EVERY 8 WEEKS
     Route: 042
     Dates: start: 20140221
  2. REMICADE [Suspect]
     Indication: CROHN^S DISEASE
     Route: 042
     Dates: start: 20140305, end: 20140305
  3. REMICADE [Suspect]
     Indication: CROHN^S DISEASE
     Route: 042
     Dates: start: 2007
  4. BENADRYL [Concomitant]
     Indication: PREMEDICATION
     Route: 048
  5. SOLUCORTEF [Concomitant]
     Indication: PREMEDICATION
     Route: 042

REACTIONS (4)
  - Blood pressure increased [Unknown]
  - Infusion related reaction [Unknown]
  - Tremor [Unknown]
  - Feeling abnormal [Unknown]
